FAERS Safety Report 7247406-3 (Version None)
Quarter: 2011Q1

REPORT INFORMATION
  Report Type: 
  Country: None (occurrence: None)
  Receive Date: 20110127
  Receipt Date: 20110118
  Transmission Date: 20110831
  Serious: Yes (Other)
  Sender: FDA-Public Use
  Company Number: PHHY2010CA03697

PATIENT
  Sex: Female

DRUGS (4)
  1. SANDOSTATIN LAR [Suspect]
     Dosage: 20 MG, EVERY 4 WEEKS
     Route: 030
  2. SANDOSTATIN LAR [Suspect]
     Dosage: 30 MG, EVERY 4 WEEKS
     Route: 030
  3. DIURETICS [Concomitant]
  4. SANDOSTATIN LAR [Suspect]
     Indication: METASTATIC NEOPLASM
     Dosage: 20 MG, QMO
     Route: 030
     Dates: start: 20091222

REACTIONS (5)
  - DYSPNOEA EXERTIONAL [None]
  - BLOOD PRESSURE INCREASED [None]
  - GASTROINTESTINAL PAIN [None]
  - COUGH [None]
  - DIARRHOEA [None]
